FAERS Safety Report 18115039 (Version 1)
Quarter: 2020Q3

REPORT INFORMATION
  Report Type: Spontaneous
  Country: US (occurrence: US)
  Receive Date: 20200805
  Receipt Date: 20200805
  Transmission Date: 20201103
  Serious: Yes (Other)
  Sender: FDA-Public Use
  Company Number: US-ROCHE-2651423

PATIENT
  Sex: Female

DRUGS (9)
  1. XELODA [Suspect]
     Active Substance: CAPECITABINE
     Indication: TRIPLE NEGATIVE BREAST CANCER
     Route: 065
     Dates: start: 2012
  2. TECENTRIQ [Suspect]
     Active Substance: ATEZOLIZUMAB
     Indication: TRIPLE NEGATIVE BREAST CANCER
     Route: 065
     Dates: start: 2012
  3. CARBOPLATIN. [Concomitant]
     Active Substance: CARBOPLATIN
     Indication: TRIPLE NEGATIVE BREAST CANCER
     Dates: start: 2012
  4. CYTOXAN [Concomitant]
     Active Substance: CYCLOPHOSPHAMIDE
     Indication: TRIPLE NEGATIVE BREAST CANCER
     Dates: start: 2012
  5. TAXOL [Concomitant]
     Active Substance: PACLITAXEL
     Indication: TRIPLE NEGATIVE BREAST CANCER
     Dosage: TRIPLE NEGATIVE BREAST CANCER
     Dates: start: 2012
  6. HALAVEN [Concomitant]
     Active Substance: ERIBULIN MESYLATE
     Indication: TRIPLE NEGATIVE BREAST CANCER
     Dates: start: 2012
  7. ADRIAMYCIN [Concomitant]
     Active Substance: DOXORUBICIN HYDROCHLORIDE
     Indication: TRIPLE NEGATIVE BREAST CANCER
     Dates: start: 2012
  8. ABRAXANE [Concomitant]
     Active Substance: PACLITAXEL
     Indication: TRIPLE NEGATIVE BREAST CANCER
     Dates: start: 2012
  9. GEMZAR [Concomitant]
     Active Substance: GEMCITABINE HYDROCHLORIDE
     Indication: TRIPLE NEGATIVE BREAST CANCER
     Dates: start: 2012

REACTIONS (2)
  - Metastases to chest wall [Unknown]
  - Metastases to breast [Unknown]

NARRATIVE: CASE EVENT DATE: 201904
